FAERS Safety Report 6279477-5 (Version None)
Quarter: 2009Q3

REPORT INFORMATION
  Report Type: 
  Country: None (occurrence: None)
  Receive Date: 20090723
  Receipt Date: 20090713
  Transmission Date: 20100115
  Serious: Yes (Other)
  Sender: FDA-Public Use
  Company Number: US-PFIZER INC-2009240647

PATIENT
  Sex: Female
  Weight: 63.492 kg

DRUGS (6)
  1. PROVERA [Suspect]
     Indication: HORMONE REPLACEMENT THERAPY
     Dosage: UNK
     Route: 048
     Dates: start: 19940101, end: 20020101
  2. PREMARIN [Suspect]
     Indication: HORMONE REPLACEMENT THERAPY
     Dosage: UNK
     Dates: start: 19940101, end: 20020101
  3. PREMARIN [Suspect]
     Indication: MENOPAUSE
  4. DOCUSATE [Concomitant]
     Indication: FAECES HARD
     Dosage: UNK
     Dates: start: 20000101, end: 20040101
  5. FLUOXETINE [Concomitant]
     Indication: DEPRESSION
     Dosage: UNK
     Dates: start: 20010101, end: 20030101
  6. HYDROCODONE [Concomitant]
     Indication: PAIN
     Dosage: UNK
     Dates: start: 19980101, end: 20040101

REACTIONS (1)
  - BREAST CANCER [None]
